FAERS Safety Report 12421333 (Version 3)
Quarter: 2016Q2

REPORT INFORMATION
  Report Type: Spontaneous
  Country: DE (occurrence: DE)
  Receive Date: 20160531
  Receipt Date: 20160627
  Transmission Date: 20160815
  Serious: Yes (Hospitalization, Other)
  Sender: FDA-Public Use
  Company Number: DE-ENDO PHARMACEUTICALS INC.-2016-003506

PATIENT
  Age: 55 Year
  Sex: Male
  Weight: 85 kg

DRUGS (2)
  1. AVEED [Suspect]
     Active Substance: TESTOSTERONE UNDECANOATE
     Indication: HYPOGONADISM
     Dosage: APPROXIMATELY 3ML
     Route: 030
     Dates: start: 20160520, end: 20160520
  2. AVEED [Suspect]
     Active Substance: TESTOSTERONE UNDECANOATE
     Route: 030
     Dates: start: 20160302, end: 20160302

REACTIONS (9)
  - Dyspnoea [Recovered/Resolved]
  - Hyperhidrosis [Recovered/Resolved]
  - Cough [Recovered/Resolved]
  - Erythema [Recovered/Resolved]
  - Rhonchi [Recovered/Resolved]
  - Swelling face [Recovered/Resolved]
  - Pulmonary oil microembolism [Recovered/Resolved]
  - Conjunctival hyperaemia [Recovered/Resolved]
  - Anaphylactic shock [Recovered/Resolved]

NARRATIVE: CASE EVENT DATE: 20160520
